FAERS Safety Report 4268578-9 (Version None)
Quarter: 2004Q1

REPORT INFORMATION
  Report Type: 
  Country: None (occurrence: None)
  Receive Date: 20040108
  Receipt Date: 20040105
  Transmission Date: 20041129
  Serious: Yes (Life-Threatening)
  Sender: FDA-Public Use
  Company Number: 2003CG01756

PATIENT
  Age: 83 Year
  Sex: Female

DRUGS (6)
  1. DIPRIVAN [Suspect]
     Indication: GENERAL ANAESTHESIA
     Dates: start: 20031015, end: 20031015
  2. SUFENTA [Suspect]
     Indication: GENERAL ANAESTHESIA
     Dates: start: 20031015, end: 20031015
  3. SEVOFLURANE [Suspect]
     Indication: GENERAL ANAESTHESIA
     Dates: start: 20031015, end: 20031015
  4. MEDICAL NITROUS OXIDE [Suspect]
     Indication: GENERAL ANAESTHESIA
     Dates: start: 20031015, end: 20031015
  5. CEFAZOLIN SODIUM [Suspect]
     Dates: start: 20031015, end: 20031015
  6. PERFALGAN [Suspect]
     Dates: start: 20031015, end: 20031015

REACTIONS (10)
  - BLOOD POTASSIUM INCREASED [None]
  - COAGULATION FACTOR V LEVEL DECREASED [None]
  - DRUG TOXICITY [None]
  - HAEMODIALYSIS [None]
  - HEPATIC FAILURE [None]
  - LOSS OF CONSCIOUSNESS [None]
  - MENTAL DISORDER [None]
  - PROTHROMBIN TIME SHORTENED [None]
  - RENAL FAILURE ACUTE [None]
  - RHABDOMYOLYSIS [None]
